FAERS Safety Report 20980437 (Version 2)
Quarter: 2022Q2

REPORT INFORMATION
  Report Type: Spontaneous
  Country: PT (occurrence: PT)
  Receive Date: 20220620
  Receipt Date: 20220629
  Transmission Date: 20220721
  Serious: Yes (Other)
  Sender: FDA-Public Use
  Company Number: PT-ALIMERA SCIENCES LIMITED-PT-A16013-22-000140

PATIENT
  Age: 69 Year
  Sex: Female

DRUGS (2)
  1. ILUVIEN [Suspect]
     Active Substance: FLUOCINOLONE ACETONIDE
     Indication: Diabetic retinal oedema
     Dosage: 0.25 MICROGRAM, QD -RIGHT EYE
     Route: 031
     Dates: start: 201607
  2. ILUVIEN [Suspect]
     Active Substance: FLUOCINOLONE ACETONIDE
     Dosage: 0.25 MICROGRAM, QD -RIGHT EYE
     Route: 031
     Dates: start: 20210329

REACTIONS (3)
  - Intraocular pressure increased [Unknown]
  - Ciliary body operation [Recovered/Resolved]
  - Retinal degeneration [Unknown]

NARRATIVE: CASE EVENT DATE: 20220101
